FAERS Safety Report 5860906-3 (Version None)
Quarter: 2008Q3

REPORT INFORMATION
  Report Type: 
  Country: None (occurrence: None)
  Receive Date: 20080827
  Receipt Date: 20080512
  Transmission Date: 20090109
  Serious: Yes (Hospitalization)
  Sender: FDA-Public Use
  Company Number: US-ABBOTT-08P-163-0432163-00

PATIENT
  Sex: Male
  Weight: 99.88 kg

DRUGS (4)
  1. NIASPAN [Suspect]
     Indication: HIGH DENSITY LIPOPROTEIN DECREASED
     Route: 048
     Dates: start: 20010901
  2. NIASPAN [Suspect]
     Indication: LOW DENSITY LIPOPROTEIN INCREASED
  3. PHENOBARBITAL TAB [Concomitant]
     Indication: CONVULSION
     Route: 048
  4. RANITIDINE [Concomitant]
     Indication: ANTACID THERAPY
     Route: 048

REACTIONS (5)
  - ATRIAL FIBRILLATION [None]
  - BURNING SENSATION [None]
  - FLUSHING [None]
  - HEART RATE IRREGULAR [None]
  - TACHYCARDIA [None]
